FAERS Safety Report 12938464 (Version 1)
Quarter: 2016Q4

REPORT INFORMATION
  Report Type: Spontaneous
  Country: US (occurrence: US)
  Receive Date: 20161114
  Receipt Date: 20161114
  Transmission Date: 20170207
  Serious: Yes (Other)
  Sender: FDA-Public Use
  Company Number: None

PATIENT
  Age: 36 Year
  Sex: Male
  Weight: 74.25 kg

DRUGS (2)
  1. ZOLOFT [Suspect]
     Active Substance: SERTRALINE HYDROCHLORIDE
     Indication: SYNCOPE
     Route: 048
     Dates: start: 20150401, end: 20150501
  2. ONE-A-DAY VITAMINS [Concomitant]

REACTIONS (6)
  - Chest pain [None]
  - Gynaecomastia [None]
  - Nipple disorder [None]
  - Haemorrhage [None]
  - Sexual dysfunction [None]
  - Drug ineffective [None]

NARRATIVE: CASE EVENT DATE: 20160101
